FAERS Safety Report 9291630 (Version 2)
Quarter: 2013Q2

REPORT INFORMATION
  Report Type: Spontaneous
  Country: JP (occurrence: JP)
  Receive Date: 20130515
  Receipt Date: 20130527
  Transmission Date: 20140414
  Serious: Yes (Other)
  Sender: FDA-Public Use
  Company Number: JP-ABBOTT-13X-087-1088608-00

PATIENT
  Age: 65 Year
  Sex: Female

DRUGS (8)
  1. CLARITHROMYCIN [Suspect]
     Indication: MYCOBACTERIAL INFECTION
  2. CLARITHROMYCIN [Suspect]
  3. RIFAMPICIN [Concomitant]
     Indication: MYCOBACTERIAL INFECTION
  4. RIFAMPICIN [Concomitant]
  5. ETHAMBUTOL [Concomitant]
     Indication: MYCOBACTERIAL INFECTION
  6. ETHAMBUTOL [Concomitant]
  7. MOXIFLOXACIN [Concomitant]
     Indication: MYCOBACTERIAL INFECTION
  8. STREPTOMYCIN [Concomitant]
     Indication: MYCOBACTERIAL INFECTION

REACTIONS (2)
  - Atypical mycobacterial infection [Unknown]
  - Adverse reaction [Unknown]
